FAERS Safety Report 18317925 (Version 1)
Quarter: 2020Q3

REPORT INFORMATION
  Report Type: Spontaneous
  Country: US (occurrence: US)
  Receive Date: 20200928
  Receipt Date: 20200928
  Transmission Date: 20201103
  Serious: Yes (Hospitalization, Other)
  Sender: FDA-Public Use
  Company Number: US-AUROBINDO-09-AUR-09507

PATIENT
  Age: 15 Year
  Sex: Female

DRUGS (1)
  1. MINOCYCLINE [Suspect]
     Active Substance: MINOCYCLINE HYDROCHLORIDE
     Indication: ACNE
     Dosage: 100 MILLIGRAM, ONCE A DAY
     Route: 065

REACTIONS (6)
  - Drug hypersensitivity [Unknown]
  - Autoimmune thyroiditis [Recovered/Resolved]
  - Rash erythematous [Unknown]
  - Pyrexia [Unknown]
  - Dermatitis exfoliative [Unknown]
  - Type 1 diabetes mellitus [Unknown]
